FAERS Safety Report 6696287-5 (Version None)
Quarter: 2010Q2

REPORT INFORMATION
  Report Type: 
  Country: None (occurrence: None)
  Receive Date: 20100426
  Receipt Date: 20100414
  Transmission Date: 20101027
  Serious: Yes (Other)
  Sender: FDA-Public Use
  Company Number: GB-JNJFOC-20100306275

PATIENT
  Age: 67 Year
  Sex: Male

DRUGS (9)
  1. ITRACONAZOLE [Suspect]
     Indication: BRONCHOPULMONARY ASPERGILLOSIS
     Route: 048
  2. AMPHOTERICIN B [Suspect]
     Indication: BRONCHOPULMONARY ASPERGILLOSIS
     Route: 042
  3. ENALAPRIL MALEATE [Concomitant]
     Route: 065
  4. ATENOLOL [Concomitant]
     Route: 065
  5. FUROSEMIDE [Concomitant]
     Route: 065
  6. LANSOPRAZOLE [Concomitant]
     Route: 065
  7. DIGOXIN [Concomitant]
     Route: 065
  8. WARFARIN SODIUM [Concomitant]
     Route: 065
  9. ASPIRIN [Concomitant]

REACTIONS (1)
  - TREMOR [None]
